FAERS Safety Report 14963800 (Version 2)
Quarter: 2018Q4

REPORT INFORMATION
  Report Type: Spontaneous
  Country: US (occurrence: US)
  Receive Date: 20180601
  Receipt Date: 20181129
  Transmission Date: 20190204
  Serious: Yes (Other)
  Sender: FDA-Public Use
  Company Number: US-SA-2017SA265269

PATIENT
  Age: 46 Year
  Sex: Female
  Weight: 85 kg

DRUGS (11)
  1. CARBOPLATIN. [Concomitant]
     Active Substance: CARBOPLATIN
  2. ADRIAMYCIN [Concomitant]
     Active Substance: DOXORUBICIN HYDROCHLORIDE
  3. TAXOTERE [Suspect]
     Active Substance: DOCETAXEL
     Dosage: UNK UNK,Q3W
     Route: 051
     Dates: start: 20131107, end: 20131107
  4. FAMOTIDINE. [Concomitant]
     Active Substance: FAMOTIDINE
  5. ZOFRAN [ONDANSETRON] [Concomitant]
  6. LEVOTHYROXINE. [Concomitant]
     Active Substance: LEVOTHYROXINE
     Dosage: UNK
     Dates: start: 2008
  7. NALTREXONE [Concomitant]
     Active Substance: NALTREXONE
     Dosage: UNK
     Dates: start: 2012
  8. DOXYCYCLINE HYDROCHLORIDE [Concomitant]
     Active Substance: DOXYCYCLINE HYDROCHLORIDE
  9. LIOTHYRONINE [Concomitant]
     Active Substance: LIOTHYRONINE
     Dosage: UNK
     Dates: start: 2008
  10. TAXOTERE [Suspect]
     Active Substance: DOCETAXEL
     Indication: BREAST CANCER
     Dosage: UNK UNK,Q3W
     Route: 051
     Dates: start: 20130814, end: 20130814
  11. BENADRYL [Concomitant]
     Active Substance: DIPHENHYDRAMINE HYDROCHLORIDE

REACTIONS (2)
  - Alopecia [Recovering/Resolving]
  - Psychological trauma [Unknown]

NARRATIVE: CASE EVENT DATE: 201405
